FAERS Safety Report 9648421 (Version 1)
Quarter: 2013Q4

REPORT INFORMATION
  Report Type: Spontaneous
  Country: US (occurrence: None)
  Receive Date: 20131024
  Receipt Date: 20131024
  Transmission Date: 20140711
  Serious: Yes (Hospitalization, Other)
  Sender: FDA-Public Use
  Company Number: 2013-000223

PATIENT
  Age: 58 Year
  Sex: Female
  Weight: 52.2 kg

DRUGS (13)
  1. ACTONEL [Suspect]
     Indication: OSTEOPOROSIS
     Route: 048
     Dates: start: 20040524, end: 2008
  2. BONIVA [Suspect]
     Indication: OSTEOPOROSIS
     Dates: start: 20080909, end: 201101
  3. MOBIC (MELOXICAM) [Concomitant]
  4. CELEBREX (CELECOXIB) [Concomitant]
  5. ADVAIR (FLUTICASONE PROPIONATE, SALMETEROL XINAFOATE) [Concomitant]
  6. MUCINEX [Concomitant]
  7. ALREX (LOTEPREDNOL ETABONATE) [Concomitant]
  8. LEXAPRO (ESCITALOPRAM OXALATE) [Concomitant]
  9. DETROL LA (TOLTERODINE L-TARTRATE) [Concomitant]
  10. AMOXIL [Concomitant]
  11. CEPHALEXIN (CEFALEXIN)+ [Concomitant]
  12. LEVAQUIN (LEVOFLOXACIN) [Concomitant]
  13. CALCIUM (CALCIUM) [Concomitant]

REACTIONS (5)
  - Atypical femur fracture [None]
  - Fall [None]
  - Stress fracture [None]
  - Bone disorder [None]
  - Low turnover osteopathy [None]
